FAERS Safety Report 6253237-3 (Version None)
Quarter: 2009Q4

REPORT INFORMATION
  Report Type: 
  Country: None (occurrence: None)
  Receive Date: 20090701
  Receipt Date: 20090626
  Transmission Date: 20100525
  Serious: Yes (Life-Threatening, Other)
  Sender: FDA-Public Use
  Company Number: FR-BRISTOL-MYERS SQUIBB COMPANY-14619126

PATIENT
  Age: 27 Year
  Sex: Male

DRUGS (8)
  1. ABILIFY [Suspect]
     Indication: SCHIZOPHRENIA, PARANOID TYPE
     Route: 030
     Dates: start: 20090430
  2. TERCIAN [Suspect]
     Indication: AGITATION
     Dates: start: 20090430
  3. FLUANXOL [Concomitant]
     Dosage: FLUANXOL LP
  4. LOXAPAC [Concomitant]
  5. DEPAMIDE [Concomitant]
  6. LORAZEPAM [Concomitant]
  7. TEMESTA [Concomitant]
     Indication: ANXIETY
     Dosage: FORM TAB
     Route: 048
     Dates: start: 20090430
  8. PARKINANE [Concomitant]
     Indication: EXTRAPYRAMIDAL DISORDER
     Dosage: PARKINANE LP 1 DF = 1 CAPS 5 MG
     Route: 048
     Dates: start: 20090430

REACTIONS (1)
  - HYPOTENSION [None]
